FAERS Safety Report 25223418 (Version 1)
Quarter: 2025Q2

REPORT INFORMATION
  Report Type: Spontaneous
  Country: US (occurrence: US)
  Receive Date: 20250422
  Receipt Date: 20250422
  Transmission Date: 20250716
  Serious: Yes (Death, Other)
  Sender: JOHNSON AND JOHNSON
  Company Number: US-JNJFOC-20250426389

PATIENT
  Age: 64 Year
  Sex: Male

DRUGS (6)
  1. VELETRI [Suspect]
     Active Substance: EPOPROSTENOL
     Indication: Pulmonary hypertension
     Route: 042
  2. VELETRI [Suspect]
     Active Substance: EPOPROSTENOL
     Indication: Right ventricular failure
  3. SILDENAFIL [Suspect]
     Active Substance: SILDENAFIL
     Indication: Pulmonary hypertension
     Route: 065
  4. SILDENAFIL [Suspect]
     Active Substance: SILDENAFIL
     Indication: Right ventricular failure
  5. IMATINIB [Suspect]
     Active Substance: IMATINIB
     Indication: Pulmonary hypertension
  6. IMATINIB [Suspect]
     Active Substance: IMATINIB
     Indication: Right ventricular failure

REACTIONS (2)
  - Death [Fatal]
  - Respiratory failure [Unknown]
